FAERS Safety Report 14623092 (Version 1)
Quarter: 2018Q1

REPORT INFORMATION
  Report Type: Spontaneous
  Country: BR (occurrence: BR)
  Receive Date: 20180311
  Receipt Date: 20180311
  Transmission Date: 20180509
  Serious: Yes (Death)
  Sender: FDA-Public Use
  Company Number: PHHY2018BR040915

PATIENT
  Sex: Female
  Weight: 45 kg

DRUGS (2)
  1. NEOTIAPIM [Suspect]
     Active Substance: QUETIAPINE
     Indication: SCHIZOPHRENIA
  2. NEOTIAPIM [Suspect]
     Active Substance: QUETIAPINE
     Indication: DEMENTIA ALZHEIMER^S TYPE
     Dosage: 1 DF, QD
     Route: 048

REACTIONS (1)
  - Pneumonia [Fatal]
